FAERS Safety Report 8406289-6 (Version None)
Quarter: 2012Q2

REPORT INFORMATION
  Report Type: 
  Country: None (occurrence: None)
  Receive Date: 20120529
  Receipt Date: 20060228
  Transmission Date: 20120825
  Serious: Yes (Other)
  Sender: FDA-Public Use
  Company Number: JP-2012-12308

PATIENT

DRUGS (1)
  1. PLETAL [Suspect]
     Dosage: 100 MG, BID

REACTIONS (2)
  - CONDITION AGGRAVATED [None]
  - INFARCTION [None]
